FAERS Safety Report 25568005 (Version 1)
Quarter: 2025Q3

REPORT INFORMATION
  Report Type: Spontaneous
  Country: CN (occurrence: US)
  Receive Date: 20250716
  Receipt Date: 20250716
  Transmission Date: 20251020
  Serious: Yes (Death, Life-Threatening, Hospitalization, Disabling, Other)
  Sender: AMGEN
  Company Number: CN-AMGEN-USASP2025135279

PATIENT

DRUGS (3)
  1. IVABRADINE [Suspect]
     Active Substance: IVABRADINE
     Indication: Tachycardia
     Route: 065
  2. IVABRADINE [Suspect]
     Active Substance: IVABRADINE
     Indication: Cardiac failure
  3. IVABRADINE [Suspect]
     Active Substance: IVABRADINE
     Indication: Coronary artery disease

REACTIONS (50)
  - Death [Fatal]
  - Ventricular fibrillation [Fatal]
  - Adverse event [Unknown]
  - Cardiac failure [Unknown]
  - Cardiac arrest [Unknown]
  - Cardiac failure acute [Unknown]
  - Cardiac failure chronic [Unknown]
  - Hospitalisation [Unknown]
  - Disability [Unknown]
  - Atrial fibrillation [Unknown]
  - Arrhythmia [Unknown]
  - Syncope [Unknown]
  - Electrocardiogram QT prolonged [Unknown]
  - Ventricular tachycardia [Unknown]
  - Torsade de pointes [Unknown]
  - Renal impairment [Unknown]
  - Angina pectoris [Unknown]
  - Loss of consciousness [Unknown]
  - Angioedema [Unknown]
  - Blindness transient [Unknown]
  - Visual impairment [Unknown]
  - Bradycardia [Unknown]
  - Heart rate decreased [Unknown]
  - Sinus bradycardia [Unknown]
  - Sinus tachycardia [Unknown]
  - Visual acuity reduced [Unknown]
  - Heart rate abnormal [Unknown]
  - Fatigue [Unknown]
  - Photopsia [Unknown]
  - Hypotension [Unknown]
  - Heart rate increased [Unknown]
  - Palpitations [Unknown]
  - Chest pain [Unknown]
  - Vision blurred [Unknown]
  - Blood pressure decreased [Unknown]
  - Contraindicated product administered [Unknown]
  - Ventricular extrasystoles [Unknown]
  - Diplopia [Unknown]
  - Photophobia [Unknown]
  - Presyncope [Unknown]
  - Dyspnoea [Unknown]
  - Heart rate irregular [Unknown]
  - Product use issue [Unknown]
  - Chest discomfort [Unknown]
  - Dizziness [Unknown]
  - Supraventricular tachycardia [Unknown]
  - Drug ineffective for unapproved indication [Unknown]
  - Drug effective for unapproved indication [Unknown]
  - Therapeutic response unexpected [Unknown]
  - Off label use [Unknown]
